FAERS Safety Report 8549980-3 (Version None)
Quarter: 2012Q3

REPORT INFORMATION
  Report Type: 
  Country: None (occurrence: None)
  Receive Date: 20120720
  Receipt Date: 20120720
  Transmission Date: 20120928
  Serious: Yes (Hospitalization)
  Sender: FDA-Public Use
  Company Number: None

PATIENT
  Age: 87 Year
  Sex: Male
  Weight: 61.4 kg

DRUGS (2)
  1. FUROSEMIDE [Suspect]
     Dosage: 20 MG EVERY DAY PO
     Route: 048
     Dates: start: 20120711, end: 20120715
  2. TAMSULOSIN HCL [Suspect]
     Indication: BENIGN PROSTATIC HYPERPLASIA
     Dosage: 0.4 MG EVERY DAY PO
     Route: 048
     Dates: start: 20061220, end: 20120715

REACTIONS (1)
  - SYNCOPE [None]
